FAERS Safety Report 15735998 (Version 1)
Quarter: 2018Q4

REPORT INFORMATION
  Report Type: Report from Study
  Country: US (occurrence: US)
  Receive Date: 20181218
  Receipt Date: 20181218
  Transmission Date: 20190205
  Serious: Yes (Hospitalization, Other)
  Sender: FDA-Public Use
  Company Number: US-ALEXION PHARMACEUTICALS INC.-A201816427

PATIENT
  Sex: Female

DRUGS (1)
  1. SOLIRIS [Suspect]
     Active Substance: ECULIZUMAB
     Indication: ATYPICAL HAEMOLYTIC URAEMIC SYNDROME
     Dosage: UNK, QW
     Route: 042
     Dates: start: 20181117

REACTIONS (8)
  - Haemoglobin decreased [Unknown]
  - Deep vein thrombosis [Unknown]
  - Neck pain [Unknown]
  - Haematocrit decreased [Unknown]
  - Haematuria [Recovered/Resolved]
  - Headache [Unknown]
  - Blood urea increased [Unknown]
  - Hypertension [Unknown]

NARRATIVE: CASE EVENT DATE: 20181123
